FAERS Safety Report 5070548-8 (Version None)
Quarter: 2006Q3

REPORT INFORMATION
  Report Type: 
  Country: None (occurrence: None)
  Receive Date: 20060804
  Receipt Date: 20060726
  Transmission Date: 20061208
  Serious: Yes (Hospitalization)
  Sender: FDA-Public Use
  Company Number: PHRM2006FR02205

PATIENT
  Age: 86 Year
  Sex: Female

DRUGS (9)
  1. AMLODIPINE BESYLATE [Concomitant]
  2. ODRIK [Concomitant]
  3. CALCIPARINE [Concomitant]
  4. IMOVANE [Concomitant]
  5. ACETAMINOPHEN [Concomitant]
  6. DIGOXIN [Concomitant]
  7. FUMAFER [Concomitant]
  8. NEBIVOLOL HCL [Concomitant]
  9. TEGRETOL [Suspect]
     Dosage: 200 MG, BID
     Route: 048

REACTIONS (6)
  - BLOOD ALKALINE PHOSPHATASE INCREASED [None]
  - BLOOD BILIRUBIN INCREASED [None]
  - GAMMA-GLUTAMYLTRANSFERASE INCREASED [None]
  - LIVER FUNCTION TEST ABNORMAL [None]
  - LUNG DISORDER [None]
  - TRANSAMINASES INCREASED [None]
